FAERS Safety Report 23684158 (Version 2)
Quarter: 2024Q1

REPORT INFORMATION
  Report Type: Spontaneous
  Country: US (occurrence: US)
  Receive Date: 20240328
  Receipt Date: 20240329
  Transmission Date: 20240409
  Serious: Yes (Other)
  Sender: FDA-Public Use
  Company Number: US-JNJFOC-20240364343

PATIENT
  Age: 65 Year
  Sex: Female
  Weight: 105.78 kg

DRUGS (1)
  1. IBUPROFEN [Suspect]
     Active Substance: IBUPROFEN
     Indication: Antiinflammatory therapy
     Dosage: 667 MG, 6 PER DAY (TOTAL OF 1014 MG ELEMENTAL CALCIUM PER DAY, FOR PHOSPHATE BINDING)
     Route: 065

REACTIONS (4)
  - Chronic kidney disease-mineral and bone disorder [Unknown]
  - End stage renal disease [Unknown]
  - Depression [Unknown]
  - Insomnia [Unknown]
